FAERS Safety Report 6022400-9 (Version None)
Quarter: 2008Q4

REPORT INFORMATION
  Report Type: 
  Country: None (occurrence: None)
  Receive Date: 20081223
  Receipt Date: 20081223
  Transmission Date: 20090506
  Serious: No
  Sender: FDA-Public Use
  Company Number: None

PATIENT
  Age: 59 Year
  Sex: Female

DRUGS (1)
  1. THYROID TAB [Suspect]
     Indication: HYPOTHYROIDISM
     Dosage: 1/2GR TD - 30 MG, 1 TAB THREE TIMES DAILY

REACTIONS (4)
  - ABASIA [None]
  - DIZZINESS [None]
  - MUSCLE SPASMS [None]
  - PRODUCT QUALITY ISSUE [None]
